FAERS Safety Report 24553515 (Version 1)
Quarter: 2024Q4

REPORT INFORMATION
  Report Type: Spontaneous
  Country: US (occurrence: US)
  Receive Date: 20241028
  Receipt Date: 20241028
  Transmission Date: 20250115
  Serious: No
  Sender: ROCHE
  Company Number: US-ROCHE-3520113

PATIENT
  Age: 14 Year
  Sex: Male

DRUGS (2)
  1. NUTROPIN AQ [Suspect]
     Active Substance: SOMATROPIN
     Indication: Growth hormone deficiency
     Dosage: ADMINISTERED 6 OF 7 DAYS WEEKLY-NUSPIN 10, STRENGTH: 10MG/2ML
     Route: 058
     Dates: start: 2014
  2. NUTROPIN AQ [Suspect]
     Active Substance: SOMATROPIN
     Route: 058

REACTIONS (3)
  - Accidental underdose [Unknown]
  - Product complaint [Unknown]
  - No adverse event [Unknown]

NARRATIVE: CASE EVENT DATE: 20240228
